FAERS Safety Report 9067310 (Version 2)
Quarter: 2013Q2

REPORT INFORMATION
  Report Type: Spontaneous
  Country: IT (occurrence: IT)
  Receive Date: 20130214
  Receipt Date: 20130409
  Transmission Date: 20140414
  Serious: Yes (Hospitalization)
  Sender: FDA-Public Use
  Company Number: IT-ELI_LILLY_AND_COMPANY-IT201302001901

PATIENT
  Age: 72 Year
  Sex: Male

DRUGS (6)
  1. ALIMTA [Suspect]
     Indication: LUNG ADENOCARCINOMA
     Dosage: 500 MG/TOTAL
     Route: 042
     Dates: start: 20121113, end: 20130103
  2. ALIMTA [Suspect]
     Dosage: 350 MG/TOTAL
     Route: 042
     Dates: start: 20121113, end: 20130103
  3. CISPLATIN [Concomitant]
     Dosage: 130 MG/TOTAL
     Route: 042
     Dates: start: 20121113, end: 20130103
  4. DEXAMETHASONE [Concomitant]
     Dosage: 8 MG, UNK
     Route: 042
     Dates: start: 20121113, end: 20130103
  5. ALOXI [Concomitant]
     Dosage: 250 UG, UNKNOWN
     Route: 042
     Dates: start: 20121113, end: 20130103
  6. ZANTAC [Concomitant]
     Dosage: 50 MG, UNKNOWN
     Route: 042
     Dates: start: 20121113, end: 20130103

REACTIONS (5)
  - Prerenal failure [Recovered/Resolved]
  - Hypokalaemia [Recovered/Resolved]
  - Leukopenia [Recovered/Resolved]
  - Diarrhoea [Recovered/Resolved]
  - Pyrexia [Recovered/Resolved]
